FAERS Safety Report 7134699-6 (Version None)
Quarter: 2010Q4

REPORT INFORMATION
  Report Type: 
  Country: None (occurrence: None)
  Receive Date: 20101203
  Receipt Date: 20101129
  Transmission Date: 20110411
  Serious: Yes (Hospitalization, Other)
  Sender: FDA-Public Use
  Company Number: BR-ROCHE-729133

PATIENT
  Sex: Female
  Weight: 78 kg

DRUGS (2)
  1. PEGINTERFERON ALFA-2A [Suspect]
     Indication: HEPATITIS C
     Route: 058
     Dates: start: 20091111
  2. RIBAVIRIN [Concomitant]

REACTIONS (8)
  - ADVERSE DRUG REACTION [None]
  - ANAEMIA [None]
  - APPLICATION SITE ERYTHEMA [None]
  - APPLICATION SITE NODULE [None]
  - GASTRIC DISORDER [None]
  - PYREXIA [None]
  - THROMBOCYTOPENIA [None]
  - UTERINE HAEMORRHAGE [None]
